FAERS Safety Report 9270003 (Version 1)
Quarter: 2013Q2

REPORT INFORMATION
  Report Type: Spontaneous
  Country: US (occurrence: US)
  Receive Date: 20130502
  Receipt Date: 20130502
  Transmission Date: 20140414
  Serious: Yes (Other)
  Sender: FDA-Public Use
  Company Number: US-RB-053076-13

PATIENT
  Age: 45 Year
  Sex: Female

DRUGS (1)
  1. SUBOXONE FILM [Suspect]
     Indication: PRODUCT USED FOR UNKNOWN INDICATION
     Dosage: SUBOXONE FILM; DOSE DETAILS NOT PROVIDED
     Route: 065

REACTIONS (5)
  - Hepatitis C [Not Recovered/Not Resolved]
  - Diabetes mellitus [Not Recovered/Not Resolved]
  - Renal pain [Not Recovered/Not Resolved]
  - Hepatic pain [Not Recovered/Not Resolved]
  - Dysuria [Not Recovered/Not Resolved]
